FAERS Safety Report 7008795-8 (Version None)
Quarter: 2010Q3

REPORT INFORMATION
  Report Type: 
  Country: None (occurrence: None)
  Receive Date: 20100921
  Receipt Date: 20100806
  Transmission Date: 20110219
  Serious: Yes (Hospitalization)
  Sender: FDA-Public Use
  Company Number: TIR-00220

PATIENT
  Age: 12 Year
  Sex: Female

DRUGS (1)
  1. LEVOTHYROXINE SODIUM [Suspect]
     Dosage: 100 UG ORAL ; 25 UG ORAL
     Route: 048

REACTIONS (2)
  - HYPOTHYROIDISM [None]
  - TRANSIENT PSYCHOSIS [None]
